FAERS Safety Report 20554868 (Version 1)
Quarter: 2022Q1

REPORT INFORMATION
  Report Type: Spontaneous
  Country: US (occurrence: US)
  Receive Date: 20220304
  Receipt Date: 20220304
  Transmission Date: 20220423
  Serious: No
  Sender: FDA-Public Use
  Company Number: US-009507513-2202USA002168

PATIENT
  Sex: Female

DRUGS (3)
  1. JANUVIA [Suspect]
     Active Substance: SITAGLIPTIN PHOSPHATE
     Indication: Blood glucose increased
     Dosage: 50 MILLIGRAM, ONCE A DAY
     Route: 048
     Dates: start: 201901, end: 2021
  2. CAPECITABINE [Concomitant]
     Active Substance: CAPECITABINE
     Indication: Bile duct cancer
     Dosage: 500 MILLIGRAM, 4 TIMES A DAY
     Route: 048
  3. AMLODIPINE [Concomitant]
     Active Substance: AMLODIPINE BESYLATE
     Indication: Bile duct cancer
     Dosage: 500 MILLIGRAM, 4 TIMES A DAY
     Route: 048

REACTIONS (3)
  - Product dose omission issue [Unknown]
  - Inability to afford medication [Unknown]
  - No adverse event [Unknown]

NARRATIVE: CASE EVENT DATE: 20210101
